FAERS Safety Report 19511710 (Version 1)
Quarter: 2021Q3

REPORT INFORMATION
  Report Type: Spontaneous
  Country: IN (occurrence: IN)
  Receive Date: 20210709
  Receipt Date: 20210709
  Transmission Date: 20211014
  Serious: Yes (Death)
  Sender: FDA-Public Use
  Company Number: IN-TILLOMEDPR-2021-EPL-002251

PATIENT

DRUGS (2)
  1. VINGRAF [Suspect]
     Active Substance: TACROLIMUS
     Indication: RENAL TRANSPLANT
     Dosage: 0.25 MILLIGRAM IN MORNING AND 0.5 MILLIGRAM IN EVENING
     Route: 048
     Dates: start: 20180320
  2. MOFILET [Suspect]
     Active Substance: MYCOPHENOLATE MOFETIL
     Indication: RENAL TRANSPLANT
     Dosage: 360 MILLIGRAM IN MORNING AND EVENING
     Route: 048
     Dates: start: 20180320

REACTIONS (1)
  - COVID-19 [Fatal]

NARRATIVE: CASE EVENT DATE: 20210415
